FAERS Safety Report 24693235 (Version 1)
Quarter: 2024Q4

REPORT INFORMATION
  Report Type: Spontaneous
  Country: DE (occurrence: DE)
  Receive Date: 20241203
  Receipt Date: 20241203
  Transmission Date: 20250115
  Serious: Yes (Other)
  Sender: SANDOZ
  Company Number: DE-ADIENNEP-2024AD000878

PATIENT
  Age: 56 Year
  Sex: Male

DRUGS (10)
  1. DEXAMETHASONE [Suspect]
     Active Substance: DEXAMETHASONE
     Indication: Autologous haematopoietic stem cell transplant
     Dosage: UNK
     Route: 065
     Dates: start: 2024
  2. DEXAMETHASONE [Suspect]
     Active Substance: DEXAMETHASONE
     Indication: Plasma cell myeloma
  3. ISATUXIMAB [Suspect]
     Active Substance: ISATUXIMAB
     Indication: Autologous haematopoietic stem cell transplant
     Dosage: UNK
     Route: 065
     Dates: start: 2024
  4. ISATUXIMAB [Suspect]
     Active Substance: ISATUXIMAB
     Indication: Plasma cell myeloma
  5. MELPHALAN [Suspect]
     Active Substance: MELPHALAN
     Indication: Autologous haematopoietic stem cell transplant
     Dosage: HIGH DOSE
     Route: 065
     Dates: start: 2024
  6. MELPHALAN [Suspect]
     Active Substance: MELPHALAN
     Indication: Plasma cell myeloma
  7. REVLIMID [Suspect]
     Active Substance: LENALIDOMIDE
     Indication: Autologous haematopoietic stem cell transplant
     Dosage: UNK
     Route: 065
     Dates: start: 2024
  8. REVLIMID [Suspect]
     Active Substance: LENALIDOMIDE
     Indication: Plasma cell myeloma
  9. VELCADE [Suspect]
     Active Substance: BORTEZOMIB
     Indication: Autologous haematopoietic stem cell transplant
     Dosage: UNK
     Route: 065
     Dates: start: 2024
  10. VELCADE [Suspect]
     Active Substance: BORTEZOMIB
     Indication: Plasma cell myeloma

REACTIONS (5)
  - Neutropenia [Recovering/Resolving]
  - Influenza like illness [Recovering/Resolving]
  - Influenza [Recovering/Resolving]
  - Immune reconstitution inflammatory syndrome [Recovering/Resolving]
  - Pneumonia influenzal [Recovering/Resolving]

NARRATIVE: CASE EVENT DATE: 20240101
